FAERS Safety Report 5089305-1 (Version None)
Quarter: 2006Q3

REPORT INFORMATION
  Report Type: 
  Country: None (occurrence: None)
  Receive Date: 20060822
  Receipt Date: 20060808
  Transmission Date: 20061208
  Serious: Yes (Death, Hospitalization)
  Sender: FDA-Public Use
  Company Number: ZA200607005050

PATIENT
  Age: 77 Year
  Sex: Male

DRUGS (4)
  1. ALIMTA [Suspect]
     Indication: MESOTHELIOMA
     Dosage: 1000 MG, OTHER, INTRAVENOUS
     Route: 042
     Dates: start: 20060525
  2. CISPLATIN [Concomitant]
  3. FOLIC ACID [Concomitant]
  4. CYANOCOBALAMIN [Concomitant]

REACTIONS (6)
  - BLOOD CREATININE INCREASED [None]
  - BLOOD URINE PRESENT [None]
  - DIARRHOEA [None]
  - NEUTROPENIA [None]
  - TREATMENT NONCOMPLIANCE [None]
  - URINARY TRACT INFECTION [None]
